FAERS Safety Report 7676829-3 (Version None)
Quarter: 2011Q3

REPORT INFORMATION
  Report Type: 
  Country: None (occurrence: None)
  Receive Date: 20110811
  Receipt Date: 20110728
  Transmission Date: 20111222
  Serious: No
  Sender: FDA-Public Use
  Company Number: US-B.I. PHARMACEUTICALS,INC./RIDGEFIELD-2011-BP-08032BP

PATIENT
  Sex: Female

DRUGS (6)
  1. PRADAXA [Suspect]
     Indication: ATRIAL FIBRILLATION
     Dosage: 300 MG
     Route: 048
     Dates: start: 20110728
  2. AVAPRO [Concomitant]
     Indication: HYPERTENSION
     Route: 048
     Dates: start: 20050101
  3. ASPIRIN [Concomitant]
     Indication: ATRIAL FIBRILLATION
     Dosage: 81 MG
     Route: 048
     Dates: start: 20050101
  4. PROCARDIA [Concomitant]
     Indication: HYPERTENSION
     Route: 048
     Dates: start: 20060101
  5. VITAMIN D [Concomitant]
     Indication: VITAMIN D DEFICIENCY
     Route: 048
     Dates: start: 20070101
  6. HYDROCHLOROTHIAZIDE [Concomitant]
     Indication: OEDEMA
     Route: 048
     Dates: start: 20050101

REACTIONS (4)
  - DIARRHOEA [None]
  - ARTHRALGIA [None]
  - ABDOMINAL PAIN UPPER [None]
  - SWELLING [None]
